FAERS Safety Report 19456530 (Version 1)
Quarter: 2021Q2

REPORT INFORMATION
  Report Type: Spontaneous
  Country: US (occurrence: US)
  Receive Date: 20210624
  Receipt Date: 20210624
  Transmission Date: 20210717
  Serious: Yes (Hospitalization, Other)
  Sender: FDA-Public Use
  Company Number: US-APOTEX-2021AP015104

PATIENT
  Age: 22 Year
  Sex: Female

DRUGS (1)
  1. BUPROPION. [Suspect]
     Active Substance: BUPROPION
     Indication: PRODUCT USED FOR UNKNOWN INDICATION
     Dosage: 1500 MILLIGRAM
     Route: 048

REACTIONS (5)
  - Serotonin syndrome [Unknown]
  - Toxicity to various agents [Unknown]
  - Overdose [Unknown]
  - Tachycardia [Unknown]
  - Tremor [Unknown]
